FAERS Safety Report 11282423 (Version 1)
Quarter: 2015Q3

REPORT INFORMATION
  Report Type: Spontaneous
  Country: US (occurrence: US)
  Receive Date: 20150720
  Receipt Date: 20150720
  Transmission Date: 20151125
  Serious: Yes (Hospitalization)
  Sender: FDA-Public Use
  Company Number: US-BEH-2015052348

PATIENT
  Age: 89 Year
  Sex: Female
  Weight: 83 kg

DRUGS (24)
  1. BUMETANIDE 0.5 MG [Concomitant]
     Active Substance: BUMETANIDE
  2. PLAVIX [Concomitant]
     Active Substance: CLOPIDOGREL BISULFATE
  3. MAVIK 4 MG [Concomitant]
  4. ACTONEL 150 MG [Concomitant]
  5. HIZENTRA [Suspect]
     Active Substance: HUMAN IMMUNOGLOBULIN G
     Dosage: 1 G (5 ML) VIAL
     Route: 058
  6. COLACE [Concomitant]
     Active Substance: DOCUSATE SODIUM
  7. METOPROLOL 25 MG [Concomitant]
     Active Substance: METOPROLOL
  8. ASPIRIN. [Concomitant]
     Active Substance: ASPIRIN
  9. HIZENTRA [Suspect]
     Active Substance: HUMAN IMMUNOGLOBULIN G
     Dosage: 2 G (10 ML) VIAL
     Route: 058
  10. PROTONIX 40 MG [Concomitant]
  11. HIZENTRA [Suspect]
     Active Substance: HUMAN IMMUNOGLOBULIN G
     Indication: IMMUNODEFICIENCY COMMON VARIABLE
     Dosage: 4 G (20 ML) VIAL
     Route: 058
  12. LMX 15 MG [Concomitant]
  13. LYRICA 75 MG [Concomitant]
  14. MULTIVITAMIN [Concomitant]
     Active Substance: VITAMINS
  15. ALBUTEROL. [Concomitant]
     Active Substance: ALBUTEROL
  16. CALCIUM 1200 MG [Concomitant]
  17. POTASSIUM 20 MEQ [Concomitant]
  18. NORCO [Concomitant]
     Active Substance: ACETAMINOPHEN\HYDROCODONE BITARTRATE
  19. HYDRALAZINE 25 MG [Concomitant]
  20. LIPITOR [Concomitant]
     Active Substance: ATORVASTATIN CALCIUM
  21. OCUVITE [Concomitant]
     Active Substance: VITAMINS
  22. DIPHENHYDRAMINE 25 MG [Concomitant]
     Indication: ANAPHYLACTIC REACTION
  23. EPINEPHRINE 0.02 MG/KG [Concomitant]
     Indication: ANAPHYLACTIC REACTION
  24. PREDNISONE 15 MG [Concomitant]

REACTIONS (2)
  - Fluid retention [Unknown]
  - Heart rate irregular [Unknown]

NARRATIVE: CASE EVENT DATE: 20150701
